FAERS Safety Report 6340799-0 (Version None)
Quarter: 2009Q3

REPORT INFORMATION
  Report Type: 
  Country: None (occurrence: None)
  Receive Date: 20090904
  Receipt Date: 20090826
  Transmission Date: 20100115
  Serious: Yes (Other)
  Sender: FDA-Public Use
  Company Number: PHBS2007JP13329

PATIENT
  Sex: Female
  Weight: 48 kg

DRUGS (6)
  1. ZOMETA [Suspect]
     Indication: METASTASES TO BONE
     Dosage: 4 MG, UNK
     Route: 042
     Dates: start: 20060818, end: 20070409
  2. FEMARA [Concomitant]
     Indication: BREAST CANCER RECURRENT
     Dosage: 2.5 MG, UNK
     Route: 048
     Dates: start: 20060710, end: 20061123
  3. FARESTON [Concomitant]
     Dosage: 120 MG, UNK
     Route: 048
  4. ARIMIDEX [Concomitant]
     Indication: BREAST CANCER RECURRENT
     Dosage: 1 MG, UNK
     Route: 048
     Dates: start: 20040101, end: 20060110
  5. AROMASIN [Concomitant]
     Indication: BREAST CANCER RECURRENT
     Dosage: 25 MG, UNK
     Route: 048
     Dates: start: 20060111, end: 20060709
  6. LEUPLIN [Concomitant]
     Indication: BREAST CANCER
     Dosage: 3.75 MG, UNK
     Route: 042
     Dates: start: 20000101, end: 20041227

REACTIONS (17)
  - ABSCESS ORAL [None]
  - BLOOD GLUCOSE INCREASED [None]
  - BONE DISORDER [None]
  - EXCESSIVE GRANULATION TISSUE [None]
  - GAMMA-GLUTAMYLTRANSFERASE DECREASED [None]
  - GINGIVAL BLISTER [None]
  - GINGIVAL DISORDER [None]
  - GINGIVAL SWELLING [None]
  - GLYCOSYLATED HAEMOGLOBIN INCREASED [None]
  - MASS [None]
  - ORAL CAVITY FISTULA [None]
  - OSTEOMYELITIS [None]
  - OSTEONECROSIS [None]
  - PAIN IN JAW [None]
  - PRIMARY SEQUESTRUM [None]
  - PURULENT DISCHARGE [None]
  - SENSORY DISTURBANCE [None]
